FAERS Safety Report 4409384-1 (Version None)
Quarter: 2004Q3

REPORT INFORMATION
  Report Type: 
  Country: None (occurrence: None)
  Receive Date: 20040722
  Receipt Date: 20040707
  Transmission Date: 20050211
  Serious: Yes (Hospitalization)
  Sender: FDA-Public Use
  Company Number: 196996

PATIENT
  Age: 58 Year
  Sex: Male
  Weight: 88.4514 kg

DRUGS (12)
  1. AVONEX [Suspect]
     Indication: MULTIPLE SCLEROSIS
     Dosage: 30 MCG QW IM
     Route: 030
     Dates: start: 20020901, end: 20040101
  2. AVONEX [Suspect]
     Indication: MULTIPLE SCLEROSIS
     Dosage: 30 MCG QW IM
     Route: 030
     Dates: start: 20040101, end: 20040101
  3. AVONEX [Suspect]
     Indication: MULTIPLE SCLEROSIS
     Dosage: 15 MCG QW IM
     Route: 030
     Dates: start: 20040101, end: 20040513
  4. TRILEPTAL [Concomitant]
  5. NEURONTIN [Concomitant]
  6. SINGULAIR [Concomitant]
  7. PULMICORT [Concomitant]
  8. SEREVENT [Concomitant]
  9. PROVENTIL [Concomitant]
  10. TYLENOL [Concomitant]
  11. ULTRAM [Concomitant]
  12. PROTONIX [Concomitant]

REACTIONS (12)
  - AMNESIA [None]
  - CHILLS [None]
  - CONDITION AGGRAVATED [None]
  - DRUG HYPERSENSITIVITY [None]
  - GASTROOESOPHAGEAL REFLUX DISEASE [None]
  - HICCUPS [None]
  - INFLUENZA LIKE ILLNESS [None]
  - INTERVERTEBRAL DISC INJURY [None]
  - LOSS OF CONSCIOUSNESS [None]
  - MULTIPLE SCLEROSIS [None]
  - RED BLOOD CELL COUNT DECREASED [None]
  - STAPHYLOCOCCAL BACTERAEMIA [None]
